FAERS Safety Report 10490896 (Version 1)
Quarter: 2014Q4

REPORT INFORMATION
  Report Type: Spontaneous
  Country: US (occurrence: US)
  Receive Date: 20141002
  Receipt Date: 20141002
  Transmission Date: 20150528
  Serious: No
  Sender: FDA-Public Use
  Company Number: US-GLAXOSMITHKLINE-A1043696A

PATIENT
  Age: 84 Year
  Sex: Female

DRUGS (6)
  1. VITAMIN B12 [Concomitant]
     Active Substance: CYANOCOBALAMIN
  2. VALSARTAN / HYDROCHLOROTHIAZIDE [Concomitant]
  3. METOPROLOL [Concomitant]
     Active Substance: METOPROLOL
  4. ADVAIR HFA [Suspect]
     Active Substance: FLUTICASONE PROPIONATE\SALMETEROL XINAFOATE
     Indication: MULTIPLE ALLERGIES
     Dosage: 1PUFF TWICE PER DAY
     Route: 055
     Dates: start: 2006
  5. VITAMIN D [Concomitant]
     Active Substance: CHOLECALCIFEROL
  6. BABY ASPIRIN [Concomitant]
     Active Substance: ASPIRIN

REACTIONS (1)
  - Extra dose administered [Unknown]

NARRATIVE: CASE EVENT DATE: 20131001
